FAERS Safety Report 10035515 (Version 2)
Quarter: 2014Q2

REPORT INFORMATION
  Report Type: Spontaneous
  Country: DE (occurrence: None)
  Receive Date: 20140321
  Receipt Date: 20140408
  Transmission Date: 20141212
  Serious: Yes (Disabling, Other)
  Sender: FDA-Public Use
  Company Number: 1403-0542

PATIENT
  Sex: Female

DRUGS (3)
  1. EYLEA [Suspect]
     Indication: AGE-RELATED MACULAR DEGENERATION
     Dates: start: 20131029, end: 20131029
  2. CHLORAMPHENICOL [Concomitant]
  3. POVIDONE IODINE (POVIDONE IODINE) [Concomitant]

REACTIONS (3)
  - Endophthalmitis [None]
  - Visual acuity reduced [None]
  - Hypopyon [None]
